FAERS Safety Report 18198855 (Version 1)
Quarter: 2020Q3

REPORT INFORMATION
  Report Type: Spontaneous
  Country: CN (occurrence: CN)
  Receive Date: 20200826
  Receipt Date: 20200826
  Transmission Date: 20201103
  Serious: Yes (Hospitalization, Other)
  Sender: FDA-Public Use
  Company Number: CN-SHIRE-CN202026724

PATIENT

DRUGS (1)
  1. HUMAN ALBUMIN [Suspect]
     Active Substance: ALBUMIN HUMAN
     Indication: HYPOPROTEINAEMIA
     Dosage: 20 GRAM, 1X/DAY:QD
     Route: 041
     Dates: start: 20200809, end: 20200809

REACTIONS (12)
  - Loss of consciousness [Recovering/Resolving]
  - Pupil fixed [Recovering/Resolving]
  - Muscle twitching [Recovering/Resolving]
  - Breath sounds abnormal [Recovering/Resolving]
  - Arrhythmia [Recovering/Resolving]
  - Rales [Recovering/Resolving]
  - Chills [Recovering/Resolving]
  - Mental status changes [Recovering/Resolving]
  - Photophobia [Recovering/Resolving]
  - Extrasystoles [Recovering/Resolving]
  - Hypersensitivity [Recovering/Resolving]
  - Infusion related reaction [Recovering/Resolving]

NARRATIVE: CASE EVENT DATE: 20200809
